FAERS Safety Report 8993021 (Version 1)
Quarter: 2013Q1

REPORT INFORMATION
  Report Type: Report from Study
  Country: US (occurrence: US)
  Receive Date: 20130102
  Receipt Date: 20130102
  Transmission Date: 20140127
  Serious: Yes (Other)
  Sender: FDA-Public Use
  Company Number: US-BAYER-2012-134624

PATIENT
  Age: 73 Year
  Sex: Male

DRUGS (17)
  1. NEXAVAR [Suspect]
     Dosage: 200 MG, BID
     Route: 048
  2. FUROSEMIDE [Concomitant]
  3. LORATADINE [Concomitant]
  4. METOPROLOL [Concomitant]
  5. SIMVASTATIN [Concomitant]
  6. RANITIDINE [Concomitant]
  7. TAMSULOSIN [Concomitant]
  8. VITAMIN D [Concomitant]
  9. MORPHINE SULPHATE [Concomitant]
  10. E-VITAMIN [TOCOPHEROL] [Concomitant]
  11. BISCOLAX [Concomitant]
  12. DOCUSATE [Concomitant]
  13. OXYCODONE [Concomitant]
  14. MIRALAX [Concomitant]
     Dosage: 3350 NF
  15. NASAL [SODIUM CHLORIDE] [Concomitant]
  16. TYLENOL [PARACETAMOL] [Concomitant]
  17. ASA [Concomitant]

REACTIONS (6)
  - Aphagia [Unknown]
  - Fatigue [Unknown]
  - Penile swelling [Unknown]
  - Dysuria [Unknown]
  - Fall [Unknown]
  - Depression [Unknown]
